FAERS Safety Report 21493862 (Version 2)
Quarter: 2022Q4

REPORT INFORMATION
  Report Type: Spontaneous
  Country: JP (occurrence: JP)
  Receive Date: 20221021
  Receipt Date: 20221229
  Transmission Date: 20230112
  Serious: Yes (Hospitalization, Other)
  Sender: FDA-Public Use
  Company Number: JP-MYLANLABS-2022M1115044

PATIENT
  Age: 49 Year
  Sex: Female

DRUGS (3)
  1. LYRICA [Suspect]
     Active Substance: PREGABALIN
     Indication: Product used for unknown indication
     Dosage: UNK 2 FORMULATIONS 5750MG IN TOTAL, QD
     Route: 048
  2. LYRICA [Suspect]
     Active Substance: PREGABALIN
     Indication: Product used for unknown indication
     Dosage: UNK 2 FORMULATIONS 5750MG IN TOTAL, QD
     Route: 048
  3. BENIDIPINE HYDROCHLORIDE [Suspect]
     Active Substance: BENIDIPINE HYDROCHLORIDE
     Indication: Product used for unknown indication
     Dosage: 160 MILLIGRAM, QD
     Route: 048

REACTIONS (4)
  - Circulatory collapse [Unknown]
  - Glossoptosis [Unknown]
  - Sinus arrest [Unknown]
  - Intentional overdose [Unknown]
